FAERS Safety Report 6126295-4 (Version None)
Quarter: 2009Q1

REPORT INFORMATION
  Report Type: 
  Country: None (occurrence: None)
  Receive Date: 20090320
  Receipt Date: 20081030
  Transmission Date: 20090719
  Serious: Yes (Hospitalization)
  Sender: FDA-Public Use
  Company Number: FR-MERCK-0810FRA00108

PATIENT
  Age: 80 Year
  Sex: Female

DRUGS (8)
  1. JANUVIA [Suspect]
     Indication: TYPE 2 DIABETES MELLITUS
     Route: 048
     Dates: start: 20080101, end: 20081015
  2. NICORANDIL [Concomitant]
     Route: 048
  3. LERCANIDIPINE HYDROCHLORIDE [Concomitant]
     Indication: HYPERTENSION
     Route: 048
  4. TELMISARTAN [Concomitant]
     Indication: HYPERTENSION
     Route: 048
  5. CICLETANINE HYDROCHLORIDE [Concomitant]
     Indication: HYPERTENSION
     Route: 048
     Dates: end: 20081001
  6. FLECAINIDE ACETATE [Concomitant]
     Indication: AGITATION
     Route: 048
     Dates: end: 20081015
  7. LEVOTHYROXINE SODIUM [Concomitant]
     Indication: HYPOTHYROIDISM
     Route: 048
  8. PRAVASTATIN SODIUM [Concomitant]
     Indication: DYSLIPIDAEMIA
     Route: 048
     Dates: end: 20081001

REACTIONS (3)
  - ELECTROCARDIOGRAM QT PROLONGED [None]
  - MALAISE [None]
  - PALPITATIONS [None]
